FAERS Safety Report 19533226 (Version 1)
Quarter: 2021Q3

REPORT INFORMATION
  Report Type: Spontaneous
  Country: DE (occurrence: DE)
  Receive Date: 20210713
  Receipt Date: 20210713
  Transmission Date: 20211014
  Serious: Yes (Other)
  Sender: FDA-Public Use
  Company Number: DE-BAUSCH-BL-2021-022715

PATIENT
  Age: 30 Year
  Sex: Male
  Weight: 65 kg

DRUGS (1)
  1. ZYKLOLAT EDO [Suspect]
     Active Substance: CYCLOPENTOLATE
     Indication: OPHTHALMOLOGICAL EXAMINATION
     Dosage: 2 TIMES 1 DROP PER EYE WITH AN INTERVAL OF 15 MINUTES. THIRD DOSE WAS SUSPENDED.
     Route: 047
     Dates: start: 20210622, end: 20210622

REACTIONS (18)
  - Thinking abnormal [Recovered/Resolved]
  - Euphoric mood [Recovering/Resolving]
  - Lacrimation increased [Unknown]
  - Palpitations [Recovered/Resolved]
  - Malaise [Recovered/Resolved]
  - Cardiovascular disorder [Recovered/Resolved]
  - Feeling abnormal [Recovered/Resolved]
  - Feeling abnormal [Recovering/Resolving]
  - Speech disorder [Recovered/Resolved]
  - Paranoia [Recovering/Resolving]
  - Nausea [Recovered/Resolved]
  - Product administration error [Unknown]
  - Tunnel vision [Recovering/Resolving]
  - Asthenia [Recovered/Resolved]
  - Somnolence [Recovered/Resolved]
  - Dizziness [Recovered/Resolved]
  - Anxiety [Recovered/Resolved]
  - Dry mouth [Recovered/Resolved]

NARRATIVE: CASE EVENT DATE: 202106
